FAERS Safety Report 15281750 (Version 1)
Quarter: 2018Q3

REPORT INFORMATION
  Report Type: Spontaneous
  Country: US (occurrence: US)
  Receive Date: 20180815
  Receipt Date: 20180815
  Transmission Date: 20181010
  Serious: No
  Sender: FDA-Public Use
  Company Number: US-GUERBET-US-20180081

PATIENT
  Age: 53 Year
  Sex: Female

DRUGS (5)
  1. HEPARIN [Concomitant]
     Active Substance: HEPARIN SODIUM
     Indication: VASODILATION PROCEDURE
     Dosage: 4000 U
     Route: 013
  2. 1% LIDOCAINE [Concomitant]
     Indication: LOCAL ANAESTHESIA
     Route: 065
  3. EMBOSPHERE PARTICLES [Concomitant]
     Indication: HAEMOSTASIS
     Dosage: 500?700 MICROMETERS
     Route: 065
  4. NITROGLYCERIN. [Concomitant]
     Active Substance: NITROGLYCERIN
     Indication: VASODILATION PROCEDURE
     Route: 013
  5. SODIUM CHLORIDE 0.9% INJECTION [Suspect]
     Active Substance: SODIUM CHLORIDE
     Indication: UTERINE LEIOMYOMA EMBOLISATION
     Route: 013

REACTIONS (2)
  - Pallor [Recovered/Resolved]
  - Erythema [Unknown]
